FAERS Safety Report 14956988 (Version 3)
Quarter: 2024Q3

REPORT INFORMATION
  Report Type: Spontaneous
  Country: GR (occurrence: GR)
  Receive Date: 20180531
  Receipt Date: 20240917
  Transmission Date: 20241017
  Serious: Yes (Other)
  Sender: NOVARTIS
  Company Number: PHHY2017GR180759

PATIENT
  Age: 62 Year
  Sex: Female

DRUGS (40)
  1. EVEROLIMUS [Suspect]
     Active Substance: EVEROLIMUS
     Indication: Recurrent cancer
     Dosage: 1 DOSAGE FORM, CYCLIC (1 - EVERY CYCLE, REGIMEN#1, COMBINATION WITH TRASTZUMAB AND EXEMESTANE)
     Route: 065
     Dates: start: 2009
  2. EVEROLIMUS [Suspect]
     Active Substance: EVEROLIMUS
     Indication: Breast cancer metastatic
  3. LAPATINIB [Suspect]
     Active Substance: LAPATINIB
     Indication: Breast cancer metastatic
     Dosage: 1 DOSAGE FORM, CYCLIC (1 - EVERY CYCLE, REGIMEN#1, COMBINATION WITH CAPECITABINE)
     Route: 065
     Dates: start: 2009
  4. LAPATINIB [Suspect]
     Active Substance: LAPATINIB
     Indication: Recurrent cancer
  5. CAPECITABINE [Suspect]
     Active Substance: CAPECITABINE
     Indication: Breast cancer metastatic
     Dosage: 1 DOSAGE FORM, CYCLIC (REGIMEN#1, COMBINATION WITH LAPATINIB, 1 - EVERY CYCLE)
     Route: 065
     Dates: start: 2009
  6. CAPECITABINE [Suspect]
     Active Substance: CAPECITABINE
     Indication: Recurrent cancer
  7. PACLITAXEL [Suspect]
     Active Substance: PACLITAXEL
     Indication: Breast cancer metastatic
     Dosage: 1 DF, CYCLIC (1 - EVERY CYCLE, REGIMEN#1)
     Route: 065
     Dates: start: 2006
  8. DOCETAXEL [Suspect]
     Active Substance: DOCETAXEL\DOCETAXEL ANHYDROUS
     Indication: Breast cancer metastatic
     Dosage: 1 DF, CYCLIC (1 - EVERY CYCLE, REGIMEN#1)
     Route: 065
     Dates: start: 2009
  9. DOCETAXEL [Suspect]
     Active Substance: DOCETAXEL\DOCETAXEL ANHYDROUS
     Indication: Recurrent cancer
  10. EPIRUBICIN HYDROCHLORIDE [Suspect]
     Active Substance: EPIRUBICIN HYDROCHLORIDE
     Indication: Breast cancer metastatic
     Dosage: 1 DOSAGE FORM, CYCLIC (1 - EVERY CYCLE, REGIMEN#1)
     Route: 065
     Dates: start: 2006
  11. GEMCITABINE HYDROCHLORIDE [Suspect]
     Active Substance: GEMCITABINE HYDROCHLORIDE
     Indication: Recurrent cancer
     Dosage: 1 DOSAGE FORM, CYCLIC (1 - EVERY CYCLE, COMBINATION WITH TRASTUZUMAB AND CARBOPLATIN)
     Route: 065
     Dates: start: 2009
  12. GEMCITABINE HYDROCHLORIDE [Suspect]
     Active Substance: GEMCITABINE HYDROCHLORIDE
     Indication: Breast cancer metastatic
  13. CYCLOPHOSPHAMIDE [Suspect]
     Active Substance: CYCLOPHOSPHAMIDE
     Indication: Breast cancer metastatic
     Dosage: UNK
     Route: 065
  14. TAMOXIFEN CITRATE [Suspect]
     Active Substance: TAMOXIFEN CITRATE
     Indication: Breast cancer metastatic
     Dosage: 1 DOSAGE FORM, CYCLIC (1-EVERY CYCLE, REGIMEN#1, COMBINATION WITH TRASTUZUMAB)
     Route: 048
     Dates: start: 2009
  15. TAMOXIFEN CITRATE [Suspect]
     Active Substance: TAMOXIFEN CITRATE
     Indication: Recurrent cancer
  16. TRASTUZUMAB [Suspect]
     Active Substance: TRASTUZUMAB
     Indication: Breast cancer metastatic
     Dosage: 1 DOSAGE FORM, CYCLIC (1-EVERY CYCLE, COMBINATION WITH FULVESTRANT)
     Route: 065
     Dates: start: 2009
  17. TRASTUZUMAB [Suspect]
     Active Substance: TRASTUZUMAB
     Indication: Recurrent cancer
     Dosage: 1 DOSAGE FORM, CYCLIC (1-EVERY CYCLE, COMBINATION WITH LIPOSOMAL DOXORUBICIN HCL)
     Route: 065
     Dates: start: 2009
  18. TRASTUZUMAB [Suspect]
     Active Substance: TRASTUZUMAB
     Dosage: 1 DOSAGE FORM, CYCLIC (1-EVERY CYCLE, COMBINATION WITH LIPOSOMAL DOXORUBICIN HCL)
     Route: 065
     Dates: start: 2009
  19. TRASTUZUMAB [Suspect]
     Active Substance: TRASTUZUMAB
     Dosage: 1 DOSAGE FORM, CYCLIC (1-EVERY CYCLE, COMBINATION WITH EXEMESTANE AND EVEROLIMUS, 1-EVERY CYCLE)
     Route: 065
     Dates: start: 2009
  20. TRASTUZUMAB [Suspect]
     Active Substance: TRASTUZUMAB
     Dosage: 1 DOSAGE FORM, CYCLIC (1-EVERY CYCLE, COMBINATION WITH TAMOXIFEN)
     Route: 065
     Dates: start: 2009
  21. TRASTUZUMAB [Suspect]
     Active Substance: TRASTUZUMAB
     Dosage: 1 DOSAGE FORM, CYCLIC (1-EVERY CYCLE, COMBINATION WITH TAMOXIFEN)
     Route: 065
     Dates: start: 2009
  22. TRASTUZUMAB [Suspect]
     Active Substance: TRASTUZUMAB
     Dosage: 1 DOSAGE FORM, CYCLIC (1-EVERY CYCLE, COMBINATION WITH GEMCITABINE AND CARBOPLATIN)
     Route: 065
     Dates: start: 2009
  23. TRASTUZUMAB [Suspect]
     Active Substance: TRASTUZUMAB
     Dosage: 1 DOSAGE FORM, CYCLIC (1-EVERY CYCLE, REGIMEN#1)
     Route: 065
     Dates: start: 2009
  24. METHOTREXATE SODIUM [Suspect]
     Active Substance: METHOTREXATE SODIUM
     Indication: Breast cancer metastatic
     Dosage: UNK, (REGIMEN #1)
     Route: 065
     Dates: start: 2006
  25. CYCLOPHOSPHAMIDE [Suspect]
     Active Substance: CYCLOPHOSPHAMIDE
     Indication: Breast cancer metastatic
     Dosage: 1 DOSAGE FORM, CYCLIC (1 - EVERY CYCLE REGIMEN#1)
     Route: 065
  26. DOXORUBICIN HYDROCHLORIDE [Suspect]
     Active Substance: DOXORUBICIN HYDROCHLORIDE
     Indication: Breast cancer metastatic
     Dosage: 1 DOSAGE FORM, QD (1 - EVERY CYCLE, REGIMEN#1, COMBINATION WITH TRASTUZUMAB)
     Route: 065
     Dates: start: 2009
  27. DOXORUBICIN HYDROCHLORIDE [Suspect]
     Active Substance: DOXORUBICIN HYDROCHLORIDE
     Indication: Recurrent cancer
  28. FULVESTRANT [Suspect]
     Active Substance: FULVESTRANT
     Indication: Breast cancer metastatic
     Dosage: 1 DOSAGE FORM, CYCLIC (1 - EVERY CYCLE, REGIMEN#1, COMBINATION WITH TRASTUZUMAB)
     Route: 030
     Dates: start: 2009
  29. FULVESTRANT [Suspect]
     Active Substance: FULVESTRANT
     Indication: Recurrent cancer
  30. FLUOROURACIL [Suspect]
     Active Substance: FLUOROURACIL
     Indication: Breast cancer metastatic
     Dosage: 1 DOSAGE FORM, CYCLIC (1-EVERY CYCLE, REGIMEN#1)
     Route: 065
     Dates: start: 2006
  31. ERIBULIN [Suspect]
     Active Substance: ERIBULIN
     Indication: Breast cancer metastatic
     Dosage: 1 DOSAGE FORM, CYCLIC (REGIMEN#1, COMBINATION WITH TRASTUZUMAB, 1 - EVERY CYCLE)
     Route: 065
     Dates: start: 2009
  32. ERIBULIN [Suspect]
     Active Substance: ERIBULIN
     Indication: Recurrent cancer
  33. ADO-TRASTUZUMAB EMTANSINE [Suspect]
     Active Substance: ADO-TRASTUZUMAB EMTANSINE
     Indication: Breast cancer metastatic
     Dosage: 1 DOSAGE FORM, CYCLIC (1 - EVERY CYCLE, REGIMEN#1)
     Route: 065
     Dates: start: 2009
  34. ADO-TRASTUZUMAB EMTANSINE [Suspect]
     Active Substance: ADO-TRASTUZUMAB EMTANSINE
     Indication: Recurrent cancer
  35. EXEMESTANE [Suspect]
     Active Substance: EXEMESTANE
     Indication: Breast cancer metastatic
     Dosage: 1 DF, CYCLIC (COMBINATION WITH TRASTZUMAB AND EVEROLIMUS, 1- EVERY CYCLE)
     Route: 065
     Dates: start: 2009
  36. EXEMESTANE [Suspect]
     Active Substance: EXEMESTANE
     Indication: Recurrent cancer
  37. VINORELBINE [Suspect]
     Active Substance: VINORELBINE TARTRATE
     Indication: Breast cancer metastatic
     Dosage: 1 DOSAGE FORM, CYCLIC (1-EVERY CYCLE, REGIMEN#1, COMBINATION WITH TRASTUZUMAB)
     Route: 065
     Dates: start: 2009
  38. VINORELBINE [Suspect]
     Active Substance: VINORELBINE TARTRATE
     Indication: Recurrent cancer
  39. CARBOPLATIN [Suspect]
     Active Substance: CARBOPLATIN
     Indication: Recurrent cancer
     Dosage: 1 DOSAGE FORM, CYCLIC (1 - EVERY CYCLE, COMBINATION WITH TRASTUZUMAB AND GEMCITABINE)
     Route: 065
     Dates: start: 2009
  40. CARBOPLATIN [Suspect]
     Active Substance: CARBOPLATIN
     Indication: Breast cancer metastatic

REACTIONS (8)
  - Metastases to lymph nodes [Unknown]
  - Metastases to skin [Unknown]
  - Skin mass [Unknown]
  - Metastases to bone [Unknown]
  - Metastases to lung [Unknown]
  - Hormone receptor positive breast cancer [Unknown]
  - Recurrent cancer [Unknown]
  - Malignant neoplasm progression [Unknown]

NARRATIVE: CASE EVENT DATE: 20090101
